FAERS Safety Report 4400861-6 (Version None)
Quarter: 2004Q3

REPORT INFORMATION
  Report Type: 
  Country: None (occurrence: None)
  Receive Date: 20040907
  Receipt Date: 20030709
  Transmission Date: 20050211
  Serious: Yes (Hospitalization)
  Sender: FDA-Public Use
  Company Number: US-BRISTOL-MYERS SQUIBB COMPANY-12322194

PATIENT
  Age: 78 Year
  Sex: Female

DRUGS (3)
  1. COUMADIN [Suspect]
     Indication: DEEP VEIN THROMBOSIS
     Dosage: DOSE: 2.5 MG TUES/THURS WITH 5.0 MG MON/WED/FRI/SAT/SUN AT EVENT ONSET
     Route: 048
     Dates: start: 19880101, end: 20030709
  2. AUGMENTIN '125' [Concomitant]
     Indication: CELLULITIS
     Dates: start: 20030612, end: 20030621
  3. ADALAT [Concomitant]

REACTIONS (1)
  - SUBDURAL HAEMATOMA [None]
